FAERS Safety Report 5299967-1 (Version None)
Quarter: 2007Q2

REPORT INFORMATION
  Report Type: 
  Country: None (occurrence: None)
  Receive Date: 20070417
  Receipt Date: 20070410
  Transmission Date: 20071010
  Serious: Yes (Hospitalization)
  Sender: FDA-Public Use
  Company Number: CN-PFIZER INC-2007024672

PATIENT
  Age: 35 Year
  Sex: Male

DRUGS (1)
  1. VIAGRA [Suspect]
     Indication: ERECTILE DYSFUNCTION
     Route: 048
     Dates: start: 20070326, end: 20070326

REACTIONS (3)
  - CHEST DISCOMFORT [None]
  - HEART RATE INCREASED [None]
  - PALPITATIONS [None]
